FAERS Safety Report 20941838 (Version 9)
Quarter: 2025Q3

REPORT INFORMATION
  Report Type: Report from Study
  Country: EU (occurrence: EU)
  Receive Date: 20220610
  Receipt Date: 20250710
  Transmission Date: 20251021
  Serious: Yes (Hospitalization, Other)
  Sender: TAKEDA
  Company Number: EU-TAKEDA-2022TUS037018

PATIENT
  Age: 11 Year
  Sex: Female

DRUGS (32)
  1. TEDUGLUTIDE [Suspect]
     Active Substance: TEDUGLUTIDE
     Indication: Short-bowel syndrome
     Dosage: 0.8 MILLIGRAM, QD
     Dates: start: 20171001, end: 20200825
  2. TEDUGLUTIDE [Suspect]
     Active Substance: TEDUGLUTIDE
     Dosage: 0.9 MILLIGRAM, 1/WEEK
     Dates: start: 20200826, end: 20210317
  3. TEDUGLUTIDE [Suspect]
     Active Substance: TEDUGLUTIDE
     Dosage: 0.9 MILLIGRAM, QD
     Dates: start: 20210318, end: 20210528
  4. TEDUGLUTIDE [Suspect]
     Active Substance: TEDUGLUTIDE
     Dosage: 1.1 MILLIGRAM, QD
     Dates: start: 20230227, end: 20230731
  5. TEDUGLUTIDE [Suspect]
     Active Substance: TEDUGLUTIDE
     Dosage: 1.2 MILLIGRAM, QD
     Dates: start: 20230801, end: 20240305
  6. TEDUGLUTIDE [Suspect]
     Active Substance: TEDUGLUTIDE
     Dosage: 1.25 MILLIGRAM, QD
     Dates: start: 20240306, end: 202412
  7. TEDUGLUTIDE [Suspect]
     Active Substance: TEDUGLUTIDE
     Dosage: 1.5 MILLIGRAM, QD
     Dates: start: 202412
  8. ENOXAPARIN SODIUM [Concomitant]
     Active Substance: ENOXAPARIN SODIUM
     Indication: Coagulopathy
     Dosage: 80 MILLIGRAM, QD
     Dates: start: 20211215
  9. FUROSEMIDE [Concomitant]
     Active Substance: FUROSEMIDE
     Indication: Dehydration
     Dates: start: 20190828, end: 20191006
  10. FUROSEMIDE [Concomitant]
     Active Substance: FUROSEMIDE
     Indication: Oedema
     Dosage: 68.6 MILLIGRAM, QD
     Dates: start: 20211215
  11. FUROSEMIDE [Concomitant]
     Active Substance: FUROSEMIDE
     Dosage: 15 MILLIGRAM, TID
     Dates: start: 20210304
  12. VITAMINS [Concomitant]
     Active Substance: VITAMINS
     Indication: Hypovitaminosis
     Dosage: 6 MILLILITER, QD
     Dates: start: 20211215
  13. CALCITRIOL [Concomitant]
     Active Substance: CALCITRIOL
     Indication: Vitamin D deficiency
     Dosage: UNK UNK, 1/WEEK
     Dates: start: 20190802
  14. CALCITRIOL [Concomitant]
     Active Substance: CALCITRIOL
     Indication: Chronic kidney disease
     Dosage: UNK UNK, 1/WEEK
     Dates: start: 20210723
  15. Levocarnitin [Concomitant]
     Indication: Carnitine
     Dosage: 50 MILLIGRAM, 1/WEEK
     Dates: start: 20190802
  16. AMPHOTERICIN B [Concomitant]
     Active Substance: AMPHOTERICIN B
     Indication: Antifungal treatment
     Dosage: 2 MILLILITER, QID
     Dates: start: 20191209
  17. OMNITROPE [Concomitant]
     Active Substance: SOMATROPIN
     Indication: Failure to thrive
     Dosage: 0.45 MILLIGRAM, QD
     Dates: start: 20200728
  18. ZINC OROTATE [Concomitant]
     Active Substance: ZINC OROTATE
     Indication: Supplementation therapy
     Dosage: 37.5 MILLIGRAM, QD
     Dates: start: 20200728
  19. Vitadral [Concomitant]
     Indication: Vitamin A deficiency
     Dosage: UNK UNK, QD
     Dates: start: 20200728
  20. CREON [Concomitant]
     Active Substance: PANCRELIPASE AMYLASE\PANCRELIPASE LIPASE\PANCRELIPASE PROTEASE
     Indication: Pancreatic failure
  21. FERRLECIT [Concomitant]
     Active Substance: SODIUM FERRIC GLUCONATE COMPLEX
     Indication: Iron deficiency
     Dosage: UNK UNK, 1/WEEK
     Dates: start: 20210304
  22. FERRLECIT [Concomitant]
     Active Substance: SODIUM FERRIC GLUCONATE COMPLEX
     Dosage: 37.5 MILLIGRAM, 1/WEEK
     Dates: start: 20210723
  23. LENOGRASTIM [Concomitant]
     Active Substance: LENOGRASTIM
     Indication: Neutropenia
  24. Blemaren [Concomitant]
     Indication: Renal failure
     Dosage: UNK UNK, BID
     Dates: start: 20210304
  25. GRANULOCYTE COLONY-STIMULATING FACTOR NOS [Concomitant]
     Active Substance: GRANULOCYTE COLONY-STIMULATING FACTOR NOS
     Indication: Neutropenia
  26. Nefrocarnit [Concomitant]
     Indication: Carnitine deficiency
     Dosage: 50 MILLIGRAM, 1/WEEK
     Dates: start: 20210723
  27. Cotrim k ratiopharm [Concomitant]
     Indication: Pneumocystis jirovecii pneumonia
     Dosage: 720 MILLIGRAM, 1/WEEK
     Dates: start: 20210723
  28. ERYTHROPOIETIN [Concomitant]
     Active Substance: ERYTHROPOIETIN
     Indication: Anaemia
     Dosage: UNK UNK, 1/WEEK
     Dates: start: 20210828
  29. Kalinor [Concomitant]
     Indication: Hypokalaemia
     Dosage: UNK UNK, QD
     Dates: start: 20210919
  30. PANTOPRAZOLE [Concomitant]
     Active Substance: PANTOPRAZOLE
     Indication: Gastric ulcer
  31. PANCRELIPASE [Concomitant]
     Active Substance: PANCRELIPASE
     Indication: Dyspepsia
     Dosage: UNK UNK, TID
     Dates: start: 20210919
  32. ERGOCALCIFEROL\PHYTONADIONE\RETINOL\TOCOPHEROL [Concomitant]
     Active Substance: ERGOCALCIFEROL\PHYTONADIONE\RETINOL\TOCOPHEROL
     Indication: Hypovitaminosis
     Dosage: 6 MILLILITER, QD
     Dates: start: 20211215

REACTIONS (4)
  - Device related sepsis [Recovered/Resolved]
  - Candida sepsis [Recovered/Resolved]
  - Thrombocytopenia [Recovered/Resolved]
  - Neutropenia [Recovered/Resolved]

NARRATIVE: CASE EVENT DATE: 20220429
